FAERS Safety Report 15409024 (Version 2)
Quarter: 2018Q3

REPORT INFORMATION
  Report Type: Spontaneous
  Country: DE (occurrence: DE)
  Receive Date: 20180920
  Receipt Date: 20180926
  Transmission Date: 20181010
  Serious: Yes (Hospitalization)
  Sender: FDA-Public Use
  Company Number: DE-MYLANLABS-2018M1068821

PATIENT
  Age: 84 Year
  Sex: Female
  Weight: 48 kg

DRUGS (13)
  1. CLINDAMYCIN. [Concomitant]
     Active Substance: CLINDAMYCIN
     Indication: PRODUCT USED FOR UNKNOWN INDICATION
     Dosage: 600 MG, 1?0?1?0, TABLETTEN (TABLETS)
     Route: 048
  2. ARCOXIA [Concomitant]
     Active Substance: ETORICOXIB
     Indication: PRODUCT USED FOR UNKNOWN INDICATION
     Dosage: 90 MG, 1?0?1?0, TABLETTEN (TABLETS)
     Route: 048
  3. PANTOPRAZOLE [Suspect]
     Active Substance: PANTOPRAZOLE
     Indication: PRODUCT USED FOR UNKNOWN INDICATION
     Dosage: 20 MG, 1?0?0?0, TABLETS
     Route: 048
  4. MOVICOL [Concomitant]
     Active Substance: POLYETHYLENE GLYCOL 3350\POTASSIUM CHLORIDE\SODIUM BICARBONATE\SODIUM CHLORIDE
     Indication: PRODUCT USED FOR UNKNOWN INDICATION
     Dosage: 13.125|0.3507|0.1785 G, 1?0?0?0, BEUTEL/SACHET
     Route: 048
  5. LEVOTHYROXINE                      /00068002/ [Concomitant]
     Active Substance: LEVOTHYROXINE
     Indication: PRODUCT USED FOR UNKNOWN INDICATION
     Dosage: 100 ?G, 1?0?0?0, TABLETS
     Route: 048
  6. TARGIN [Concomitant]
     Active Substance: NALOXONE HYDROCHLORIDE\OXYCODONE HYDROCHLORIDE
     Indication: PRODUCT USED FOR UNKNOWN INDICATION
     Dosage: 20|10 MG, 1?0?1?0, TABLETTEN (TABLETS)
     Route: 048
  7. METAMIZOL                          /06276701/ [Concomitant]
     Active Substance: METAMIZOLE
     Indication: PRODUCT USED FOR UNKNOWN INDICATION
     Dosage: 500 MG, 1?1?1?1, TABLETTEN (TABLETS)
     Route: 048
  8. CERTOPARIN SODIUM [Concomitant]
     Active Substance: CERTOPARIN SODIUM
     Indication: PRODUCT USED FOR UNKNOWN INDICATION
     Dosage: 3000 IE, 0?0?1?0, INJECTION / INFUSION SOLUTION
     Route: 058
  9. OMNIFLORA N                        /06545701/ [Concomitant]
     Indication: PRODUCT USED FOR UNKNOWN INDICATION
     Dosage: 25|25 MG, 1?0?1?0, CAPSULES
     Route: 048
  10. MINIRIN [Suspect]
     Active Substance: DESMOPRESSIN ACETATE
     Indication: PRODUCT USED FOR UNKNOWN INDICATION
     Dosage: 60 ?G, 1?0?1?0, SCHMELZTABLETTEN(ORODISPERSIBLE TABLETS)
     Route: 048
  11. STAPHYLEX                          /00239102/ [Concomitant]
     Indication: PRODUCT USED FOR UNKNOWN INDICATION
     Dosage: 2 G, 1?1?1?0, INJEKTIONS?/INFUSIONSL?SUNG (INJECTION / INFUSION SOLUTION)
     Route: 042
  12. ONDANSETRON [Concomitant]
     Active Substance: ONDANSETRON
     Indication: PRODUCT USED FOR UNKNOWN INDICATION
     Dosage: 4 MG, 1?0?1?0, TABLETS
     Route: 048
  13. NALOXONE HYDROCHLORIDE W/TILIDINE HYDROCHLORI [Concomitant]
     Active Substance: NALOXONE HYDROCHLORIDE\TILIDINE HYDROCHLORIDE
     Indication: PRODUCT USED FOR UNKNOWN INDICATION
     Dosage: UNK UNK, BID
     Route: 048

REACTIONS (5)
  - Vomiting [Unknown]
  - Hyponatraemia [Unknown]
  - Product used for unknown indication [Unknown]
  - Nausea [Unknown]
  - Drug prescribing error [Unknown]
